FAERS Safety Report 8015308-0 (Version None)
Quarter: 2011Q4

REPORT INFORMATION
  Report Type: 
  Country: None (occurrence: None)
  Receive Date: 20111223
  Receipt Date: 20111219
  Transmission Date: 20120403
  Serious: Yes (Hospitalization)
  Sender: FDA-Public Use
  Company Number: 2011HGS-003002

PATIENT
  Age: 29 Year
  Sex: Female
  Weight: 59 kg

DRUGS (3)
  1. HYDROXYCHLOROQUINE (HYDROXYCHLOROQUINE) (HYDROXYCHLOROQUINE) [Concomitant]
  2. PREDNISOLONE [Concomitant]
  3. BELIMUMAB [Suspect]
     Indication: SYSTEMIC LUPUS ERYTHEMATOSUS
     Dosage: 10 MG/KG, 1 IN  28 D, INTRAVENOUS DRIP
     Route: 041
     Dates: start: 20090313

REACTIONS (5)
  - PLEURAL EFFUSION [None]
  - CHEST PAIN [None]
  - PYREXIA [None]
  - FLANK PAIN [None]
  - BACK PAIN [None]
